FAERS Safety Report 13240559 (Version 1)
Quarter: 2017Q1

REPORT INFORMATION
  Report Type: Spontaneous
  Country: US (occurrence: US)
  Receive Date: 20170216
  Receipt Date: 20170216
  Transmission Date: 20170428
  Serious: No
  Sender: FDA-Public Use
  Company Number: US-RELYPSA-RLY2016003529

PATIENT
  Age: 80 Year
  Sex: Male

DRUGS (2)
  1. VELTASSA [Suspect]
     Active Substance: PATIROMER
     Indication: HYPERKALAEMIA
     Dosage: 320 MG, QD
     Route: 065
     Dates: start: 20160720, end: 20160920
  2. VELTASSA [Suspect]
     Active Substance: PATIROMER
     Dosage: 160 MG, QD
     Route: 065
     Dates: start: 20160920, end: 20160928

REACTIONS (2)
  - Blood potassium increased [Unknown]
  - Malaise [Recovered/Resolved]

NARRATIVE: CASE EVENT DATE: 201607
